FAERS Safety Report 6834027-7 (Version None)
Quarter: 2010Q3

REPORT INFORMATION
  Report Type: 
  Country: None (occurrence: None)
  Receive Date: 20100712
  Receipt Date: 20070409
  Transmission Date: 20110219
  Serious: No
  Sender: FDA-Public Use
  Company Number: US-PFIZER INC-2007029039

PATIENT
  Sex: Female
  Weight: 70.76 kg

DRUGS (3)
  1. CHANTIX [Suspect]
     Indication: SMOKING CESSATION THERAPY
     Dates: start: 20070331
  2. IMITREX [Suspect]
     Indication: MIGRAINE
  3. ZYRTEC [Concomitant]

REACTIONS (3)
  - CONSTIPATION [None]
  - MIGRAINE [None]
  - SOMNOLENCE [None]
